FAERS Safety Report 6135854-4 (Version None)
Quarter: 2009Q1

REPORT INFORMATION
  Report Type: 
  Country: None (occurrence: None)
  Receive Date: 20090327
  Receipt Date: 20090318
  Transmission Date: 20090719
  Serious: Yes (Death, Hospitalization, Other)
  Sender: FDA-Public Use
  Company Number: US-BAXTER-2009BH004481

PATIENT
  Sex: Male
  Weight: 81 kg

DRUGS (1)
  1. HEPARIN SODIUM INJECTION [Suspect]
     Indication: INTRAVENOUS CATHETER MANAGEMENT
     Route: 065
     Dates: start: 20070705, end: 20071201

REACTIONS (15)
  - BLINDNESS [None]
  - BLOOD URINE PRESENT [None]
  - BODY TEMPERATURE DECREASED [None]
  - CARDIO-RESPIRATORY ARREST [None]
  - CHILLS [None]
  - CIRCULATORY COLLAPSE [None]
  - DYSPNOEA [None]
  - EYE ROLLING [None]
  - HAEMORRHAGE [None]
  - HYPERHIDROSIS [None]
  - HYPERSENSITIVITY [None]
  - HYPOTENSION [None]
  - LEUKAEMIA PLASMACYTIC [None]
  - PYREXIA [None]
  - TREMOR [None]
